FAERS Safety Report 7551177-0 (Version None)
Quarter: 2011Q2

REPORT INFORMATION
  Report Type: 
  Country: None (occurrence: None)
  Receive Date: 20110616
  Receipt Date: 20110602
  Transmission Date: 20111010
  Serious: Yes (Other)
  Sender: FDA-Public Use
  Company Number: PHHY2011TW46472

PATIENT
  Sex: Female
  Weight: 52 kg

DRUGS (1)
  1. ZOLEDRONIC ACID [Suspect]
     Indication: OSTEOPOROSIS POSTMENOPAUSAL
     Dosage: 5 MG  PER YEAR
     Route: 042
     Dates: start: 20110518

REACTIONS (18)
  - OEDEMA [None]
  - VISION BLURRED [None]
  - NAUSEA [None]
  - EMOTIONAL DISTRESS [None]
  - NIGHT SWEATS [None]
  - CHILLS [None]
  - ANXIETY [None]
  - OEDEMA PERIPHERAL [None]
  - PAIN [None]
  - GAIT DISTURBANCE [None]
  - VOMITING [None]
  - JOINT SWELLING [None]
  - PAIN IN EXTREMITY [None]
  - ARTHRALGIA [None]
  - DIZZINESS [None]
  - INSOMNIA [None]
  - PALPITATIONS [None]
  - PYREXIA [None]
